FAERS Safety Report 24150353 (Version 1)
Quarter: 2024Q3

REPORT INFORMATION
  Report Type: Report from Study
  Country: CA (occurrence: None)
  Receive Date: 20240730
  Receipt Date: 20240730
  Transmission Date: 20241017
  Serious: Yes (Hospitalization)
  Sender: ASTRAZENECA
  Company Number: 2020SF52540

PATIENT
  Age: 26479 Day
  Sex: Male

DRUGS (7)
  1. FASENRA [Suspect]
     Active Substance: BENRALIZUMAB
     Indication: Asthma
     Dosage: 30.0MG UNKNOWN
     Route: 058
     Dates: start: 20190430
  2. FASENRA [Suspect]
     Active Substance: BENRALIZUMAB
     Indication: Asthma
     Dosage: 30.0MG UNKNOWN
     Route: 058
     Dates: start: 20200112
  3. MONTELUKAST [Concomitant]
     Active Substance: MONTELUKAST SODIUM
     Dosage: 10.0MG UNKNOWN
  4. ZENHALE [Concomitant]
     Active Substance: FORMOTEROL FUMARATE\MOMETASONE FUROATE
     Dosage: 2 PUFF,TWO TIMES A DAY
  5. GLYCOPYRROLATE [Concomitant]
     Active Substance: GLYCOPYRROLATE
  6. NUCALA [Concomitant]
     Active Substance: MEPOLIZUMAB
  7. BRICANYL [Concomitant]
     Active Substance: TERBUTALINE SULFATE
     Dosage: 0.5 MG 1 TO 2 INH, 4 TIMES PER DAY AS NEEDED

REACTIONS (5)
  - Anaemia [Recovered/Resolved]
  - SARS-CoV-2 test positive [Unknown]
  - Pulmonary oedema [Recovered/Resolved]
  - Cardiac valve disease [Not Recovered/Not Resolved]
  - Pulmonary congestion [Recovered/Resolved]

NARRATIVE: CASE EVENT DATE: 20201118
